FAERS Safety Report 6873599-3 (Version None)
Quarter: 2010Q3

REPORT INFORMATION
  Report Type: 
  Country: None (occurrence: None)
  Receive Date: 20100723
  Receipt Date: 20090401
  Transmission Date: 20110219
  Serious: No
  Sender: FDA-Public Use
  Company Number: US-PFIZER INC-2009154769

PATIENT
  Sex: Female
  Weight: 72.562 kg

DRUGS (5)
  1. CHANTIX [Suspect]
     Indication: SMOKING CESSATION THERAPY
     Route: 048
     Dates: start: 20090101, end: 20090109
  2. OXYCODONE [Concomitant]
     Dosage: UNK
  3. MORPHINE [Concomitant]
     Dosage: UNK
  4. TRAZODONE [Concomitant]
     Dosage: UNK
  5. CYMBALTA [Concomitant]
     Dosage: UNK

REACTIONS (1)
  - COLD SWEAT [None]
